FAERS Safety Report 9238797 (Version 2)
Quarter: 2013Q2

REPORT INFORMATION
  Report Type: Spontaneous
  Country: US (occurrence: US)
  Receive Date: 20130418
  Receipt Date: 20130529
  Transmission Date: 20140414
  Serious: No
  Sender: FDA-Public Use
  Company Number: US-PFIZER INC-2013122845

PATIENT
  Age: 69 Year
  Sex: 0

DRUGS (2)
  1. NEURONTIN [Suspect]
     Indication: NEURALGIA
     Dosage: 600 MG, 4X/DAY
  2. ZANAFLEX [Suspect]
     Indication: NEURALGIA
     Dosage: 4 MG, 1-2 AT BEDTIME

REACTIONS (1)
  - Drug ineffective [Unknown]
